FAERS Safety Report 7366008-1 (Version None)
Quarter: 2011Q1

REPORT INFORMATION
  Report Type: 
  Country: None (occurrence: None)
  Receive Date: 20110317
  Receipt Date: 20110317
  Transmission Date: 20110831
  Serious: Yes (Other)
  Sender: FDA-Public Use
  Company Number: None

PATIENT
  Age: 46 Year
  Sex: Female
  Weight: 56.6996 kg

DRUGS (1)
  1. ZOFRAN [Suspect]
     Indication: NAUSEA
     Dosage: I BELIEVE IT WAS 4MG IN IV 1X IV  NOT SURE THOUGH
     Route: 042
     Dates: start: 20110224

REACTIONS (12)
  - COUGH [None]
  - ABDOMINAL PAIN UPPER [None]
  - MUSCLE TWITCHING [None]
  - NAUSEA [None]
  - ABASIA [None]
  - AGITATION [None]
  - PYREXIA [None]
  - CHILLS [None]
  - URTICARIA [None]
  - PRESYNCOPE [None]
  - FEELING JITTERY [None]
  - DIZZINESS [None]
